FAERS Safety Report 15452211 (Version 1)
Quarter: 2018Q4

REPORT INFORMATION
  Report Type: Spontaneous
  Country: JP (occurrence: JP)
  Receive Date: 20181001
  Receipt Date: 20181001
  Transmission Date: 20190204
  Serious: Yes (Hospitalization)
  Sender: FDA-Public Use
  Company Number: JP-ELI_LILLY_AND_COMPANY-JP201808015020

PATIENT
  Age: 70 Year
  Sex: Male
  Weight: 61 kg

DRUGS (9)
  1. TALTZ [Suspect]
     Active Substance: IXEKIZUMAB
     Indication: PUSTULAR PSORIASIS
     Dosage: 80 MG, MONTHLY (1/M)
     Route: 058
     Dates: start: 20180118, end: 20180802
  2. SHOSEIRYUTO /08000301/ [Suspect]
     Active Substance: HERBALS
     Indication: PRODUCT USED FOR UNKNOWN INDICATION
     Dosage: 6 G, UNK
     Route: 048
     Dates: end: 20180829
  3. OLOPATADINE. [Concomitant]
     Active Substance: OLOPATADINE
     Indication: PUSTULAR PSORIASIS
     Dosage: 10 MG, UNK
     Route: 048
     Dates: start: 201606
  4. HYPEN                              /00613801/ [Suspect]
     Active Substance: ETODOLAC
     Indication: PUSTULAR PSORIASIS
     Dosage: 400 MG, UNK
     Route: 048
     Dates: start: 20180705, end: 20180827
  5. BENIDIPINE [Concomitant]
     Active Substance: BENIDIPINE
     Dosage: 8 MG, UNK
     Route: 048
  6. AZILVA [Concomitant]
     Active Substance: AZILSARTAN KAMEDOXOMIL
     Dosage: 40 MG, UNK
     Route: 048
  7. TIGASON                            /00530101/ [Concomitant]
     Active Substance: ETRETINATE
     Indication: PUSTULAR PSORIASIS
     Dosage: 10 MG, ALTERNATE DAY ADMINISTRATION
     Route: 048
  8. FAMOTIDINE. [Concomitant]
     Active Substance: FAMOTIDINE
     Dosage: 20 MG, UNK
     Route: 048
  9. ADOAIR [Concomitant]
     Active Substance: FLUTICASONE PROPIONATE\SALMETEROL XINAFOATE
     Dosage: UNK
     Route: 055

REACTIONS (1)
  - Interstitial lung disease [Not Recovered/Not Resolved]

NARRATIVE: CASE EVENT DATE: 20180801
